FAERS Safety Report 7336520-X (Version None)
Quarter: 2011Q1

REPORT INFORMATION
  Report Type: 
  Country: None (occurrence: None)
  Receive Date: 20110307
  Receipt Date: 20110225
  Transmission Date: 20110831
  Serious: Yes (Hospitalization, Other)
  Sender: FDA-Public Use
  Company Number: CH-BAYER-2011-017995

PATIENT
  Age: 62 Year
  Sex: Male

DRUGS (7)
  1. SORTIS [Concomitant]
     Dosage: 60 MG, QD
     Route: 048
  2. ASPIRIN [Suspect]
     Dosage: DAILY DOSE 100 MG
     Route: 048
  3. GABAPENTIN [Suspect]
     Dosage: UNK
     Route: 048
  4. LEVOTHYROXINE [Concomitant]
     Dosage: DAILY DOSE 75 ?G
     Route: 048
  5. VITAMIN B-12 [Concomitant]
     Dosage: DAILY DOSE 1000 MG
     Route: 048
  6. ESOMEPRAZOLE [Suspect]
     Dosage: DAILY DOSE 40 MG
     Route: 048
  7. AMOXICILLINE + CLAVULANIC ACID [Suspect]
     Dosage: DAILY DOSE 4800 MG
     Route: 042
     Dates: start: 20110113, end: 20110119

REACTIONS (8)
  - NEUTROPENIA [None]
  - RESPIRATORY FAILURE [None]
  - EROSIVE DUODENITIS [None]
  - AGRANULOCYTOSIS [None]
  - SMALL INTESTINAL HAEMORRHAGE [None]
  - LEUKOPENIA [None]
  - ANAEMIA [None]
  - MELAENA [None]
